FAERS Safety Report 18233294 (Version 1)
Quarter: 2020Q3

REPORT INFORMATION
  Report Type: Spontaneous
  Country: US (occurrence: US)
  Receive Date: 20200904
  Receipt Date: 20200904
  Transmission Date: 20201103
  Serious: Yes (Death, Other)
  Sender: FDA-Public Use
  Company Number: None

PATIENT
  Age: 75 Year
  Sex: Male
  Weight: 83 kg

DRUGS (1)
  1. REMDESIVIR. [Suspect]
     Active Substance: REMDESIVIR
     Indication: COVID-19
     Route: 042
     Dates: start: 20200807, end: 20200815

REACTIONS (8)
  - Acute respiratory failure [None]
  - Cardiac arrest [None]
  - Agitation [None]
  - Ventricular fibrillation [None]
  - Cardiac failure chronic [None]
  - Transfusion [None]
  - Urine output decreased [None]
  - Anxiety [None]

NARRATIVE: CASE EVENT DATE: 20200904
